FAERS Safety Report 25006471 (Version 1)
Quarter: 2025Q1

REPORT INFORMATION
  Report Type: Spontaneous
  Country: GR (occurrence: GR)
  Receive Date: 20250224
  Receipt Date: 20250224
  Transmission Date: 20250408
  Serious: Yes (Hospitalization)
  Sender: ABBVIE
  Company Number: GR-ABBVIE-6146598

PATIENT
  Age: 52 Year
  Sex: Female

DRUGS (2)
  1. RINVOQ [Suspect]
     Active Substance: UPADACITINIB
     Indication: Psoriatic arthropathy
     Route: 048
  2. CORTISONE [Suspect]
     Active Substance: CORTISONE
     Indication: Hospitalisation
     Route: 065

REACTIONS (2)
  - Accident [Unknown]
  - Transaminases increased [Not Recovered/Not Resolved]
